FAERS Safety Report 13728683 (Version 1)
Quarter: 2017Q3

REPORT INFORMATION
  Report Type: Spontaneous
  Country: US (occurrence: US)
  Receive Date: 20170707
  Receipt Date: 20170707
  Transmission Date: 20171127
  Serious: No
  Sender: FDA-Public Use
  Company Number: US-JNJFOC-20170413638

PATIENT
  Sex: Male

DRUGS (1)
  1. NATRECOR [Suspect]
     Active Substance: NESIRITIDE
     Indication: PRODUCT USED FOR UNKNOWN INDICATION
     Route: 042

REACTIONS (2)
  - Urine output decreased [Unknown]
  - Blood creatinine increased [Unknown]
